FAERS Safety Report 5971369-1 (Version None)
Quarter: 2008Q4

REPORT INFORMATION
  Report Type: 
  Country: None (occurrence: None)
  Receive Date: 20081130
  Receipt Date: 20081120
  Transmission Date: 20090506
  Serious: Yes (Other)
  Sender: FDA-Public Use
  Company Number: AU-PFIZER INC-2008098392

PATIENT
  Sex: Male

DRUGS (1)
  1. CHAMPIX [Suspect]
     Indication: SMOKING CESSATION THERAPY

REACTIONS (9)
  - AGGRESSION [None]
  - DEPRESSION [None]
  - FEELINGS OF WORTHLESSNESS [None]
  - MALAISE [None]
  - NAUSEA [None]
  - NERVOUSNESS [None]
  - SELF-INJURIOUS IDEATION [None]
  - SOCIAL PROBLEM [None]
  - UNEVALUABLE EVENT [None]
